FAERS Safety Report 8798268 (Version 3)
Quarter: 2012Q4

REPORT INFORMATION
  Report Type: 
  Country: AU (occurrence: AU)
  Receive Date: 20120920
  Receipt Date: 20121029
  Transmission Date: 20130627
  Serious: Yes (Death, Hospitalization, Other)
  Sender: FDA-Public Use
  Company Number: AU-B.I. PHARMACEUTICALS,INC./RIDGEFIELD-2012-AU-01634AU

PATIENT
  Age: 79 None
  Sex: Male
  Weight: 103 kg

DRUGS (22)
  1. PRADAXA [Suspect]
     Indication: ATRIAL FIBRILLATION
     Dosage: 220 mg
     Dates: start: 20110919, end: 20120720
  2. PRADAXA [Suspect]
     Dosage: 220 mg
     Dates: start: 20120729
  3. HUMALOG MIX50 [Concomitant]
     Indication: TYPE 2 DIABETES MELLITUS
     Dosage: 50 units/mL - 24 units mane
     Route: 058
  4. ATACAND [Concomitant]
     Indication: HYPERTENSION
     Dosage: 8 mg
     Route: 048
  5. BETNOVATE [Concomitant]
     Dosage: 0.02%
     Route: 061
  6. CENTRUM [Concomitant]
     Route: 048
  7. CYPROTERONE [Concomitant]
     Dosage: 100 mg
     Route: 048
     Dates: start: 20120730
  8. ELOCON [Concomitant]
     Indication: ECZEMA
     Dosage: 0.1%
     Route: 061
  9. ENDONE [Concomitant]
     Route: 048
  10. GLYADE MR SR [Concomitant]
     Indication: TYPE 2 DIABETES MELLITUS
     Dosage: 120 mg
     Route: 048
  11. LASIX M [Concomitant]
     Indication: OEDEMA PERIPHERAL
     Dosage: 20 mg
     Route: 048
     Dates: start: 20120730
  12. MURELAX [Concomitant]
     Dosage: 30 mg
     Route: 048
  13. MYLANTA DOUBLE STRENGTH [Concomitant]
     Indication: ERUCTATION
     Dosage: 400mg + 30mg /5mL
     Route: 048
  14. NEXIUM [Concomitant]
     Indication: BARRETT^S OESOPHAGUS
     Dosage: 40 mg
     Route: 048
  15. NORSPAN [Concomitant]
     Indication: SPINAL OSTEOARTHRITIS
     Dosage: 1.4286 mg
     Route: 062
  16. NORSPAN [Concomitant]
     Dosage: 0.7143 mg
     Route: 062
  17. OSTELIN VITAMIN D [Concomitant]
     Indication: VITAMIN D DEFICIENCY
     Dosage: 1000 U
     Route: 048
  18. PANADOL OSTEO [Concomitant]
     Route: 048
  19. SIMVAR [Concomitant]
     Indication: HYPERCHOLESTEROLAEMIA
     Dosage: 40 mg
     Route: 048
  20. SOTALOL [Concomitant]
     Indication: ATRIAL FIBRILLATION
     Dosage: 320 mg
     Route: 048
  21. ZANTAC [Concomitant]
     Dosage: 300 mg
     Route: 048
  22. ZINVIT C-250 [Concomitant]
     Indication: SKIN ULCER
     Dosage: 100 mg/50 mg/250 mg
     Route: 048

REACTIONS (9)
  - Cardiac failure [Fatal]
  - Cerebral infarction [Fatal]
  - Prostate cancer [Unknown]
  - Urinary retention [Unknown]
  - Constipation [Unknown]
  - Haematuria [Unknown]
  - Confusional state [Unknown]
  - Aphasia [Unknown]
  - Hemiparesis [Unknown]
